FAERS Safety Report 8088010-7 (Version None)
Quarter: 2012Q1

REPORT INFORMATION
  Report Type: 
  Country: None (occurrence: None)
  Receive Date: 20120128
  Receipt Date: 20110611
  Transmission Date: 20120608
  Serious: No
  Sender: FDA-Public Use
  Company Number: US-ABBOTT-11P-163-0731770-00

PATIENT
  Age: 33 Year
  Sex: Male

DRUGS (5)
  1. HUMIRA [Suspect]
     Indication: CROHN'S DISEASE
     Dosage: 4 INJECTIONS, 40MG EACH
     Dates: start: 20110610
  2. PRILOSEC [Concomitant]
     Indication: DYSPEPSIA
  3. PAXIL [Concomitant]
     Indication: ANXIETY
  4. HYDROCHLOROTH [Concomitant]
     Indication: HYPERTENSION
  5. LISINOPRIL [Concomitant]
     Indication: HYPERTENSION

REACTIONS (3)
  - RASH MACULAR [None]
  - FEELING ABNORMAL [None]
  - DYSPNOEA [None]
